FAERS Safety Report 22270313 (Version 10)
Quarter: 2025Q1

REPORT INFORMATION
  Report Type: Spontaneous
  Country: JP (occurrence: JP)
  Receive Date: 20230501
  Receipt Date: 20250314
  Transmission Date: 20250409
  Serious: Yes (Hospitalization)
  Sender: AMGEN
  Company Number: JP-KISSEI-TV20230165_P_1

PATIENT
  Age: 79 Year
  Sex: Female
  Weight: 40.2 kg

DRUGS (16)
  1. TAVNEOS [Suspect]
     Active Substance: AVACOPAN
     Indication: Microscopic polyangiitis
     Dosage: 30,MG,BID
     Route: 048
     Dates: start: 20230202, end: 20230314
  2. TAVNEOS [Suspect]
     Active Substance: AVACOPAN
     Indication: Anti-neutrophil cytoplasmic antibody positive vasculitis
  3. PREDNISOLONE [Suspect]
     Active Substance: PREDNISOLONE
     Indication: Microscopic polyangiitis
     Dosage: PER ORAL MEDICINE
     Route: 048
  4. PREDNISOLONE [Suspect]
     Active Substance: PREDNISOLONE
     Dosage: PER ORAL MEDICINE
     Route: 048
     Dates: end: 20230219
  5. PREDNISOLONE [Suspect]
     Active Substance: PREDNISOLONE
     Dosage: PER ORAL MEDICINE
     Route: 048
     Dates: start: 20230220
  6. CYCLOPHOSPHAMIDE [Suspect]
     Active Substance: CYCLOPHOSPHAMIDE
     Indication: Microscopic polyangiitis
     Route: 040
     Dates: start: 20230123, end: 20230220
  7. ATOVAQUONE [Concomitant]
     Active Substance: ATOVAQUONE
     Indication: Antifungal prophylaxis
     Dosage: LIQUID MEDICINE FOR INTERNAL USE
     Route: 048
  8. ATOVAQUONE [Concomitant]
     Active Substance: ATOVAQUONE
     Route: 048
  9. ROSUVASTATIN CALCIUM [Concomitant]
     Active Substance: ROSUVASTATIN CALCIUM
     Route: 048
     Dates: end: 20230317
  10. ASPIRIN [Concomitant]
     Active Substance: ASPIRIN
     Indication: Glomerulonephritis rapidly progressive
     Route: 048
  11. VONOPRAZAN FUMARATE [Concomitant]
     Active Substance: VONOPRAZAN FUMARATE
     Route: 048
  12. SODIUM FERROUS CITRATE [Concomitant]
     Active Substance: SODIUM FERROUS CITRATE
     Route: 048
     Dates: end: 20230315
  13. NIFEDIPINE [Concomitant]
     Active Substance: NIFEDIPINE
     Route: 048
  14. ALENDRONATE [Concomitant]
     Active Substance: ALENDRONATE SODIUM
     Route: 048
     Dates: end: 20230314
  15. ALENDRONATE [Concomitant]
     Active Substance: ALENDRONATE SODIUM
     Route: 048
  16. CILNIDIPINE [Concomitant]
     Active Substance: CILNIDIPINE
     Route: 048
     Dates: end: 20230315

REACTIONS (1)
  - Drug-induced liver injury [Recovered/Resolved]

NARRATIVE: CASE EVENT DATE: 20230314
